FAERS Safety Report 4791820-2 (Version None)
Quarter: 2005Q4

REPORT INFORMATION
  Report Type: 
  Country: None (occurrence: None)
  Receive Date: 20051007
  Receipt Date: 20050926
  Transmission Date: 20060501
  Serious: Yes (Hospitalization)
  Sender: FDA-Public Use
  Company Number: US-KINGPHARMUSA00001-K200501252

PATIENT
  Age: 90 Year
  Sex: Female

DRUGS (4)
  1. ALTACE [Suspect]
     Dosage: 1.25 MG, QD
     Route: 048
     Dates: start: 20041030, end: 20050906
  2. SPIRONOLACTONE/FUROSEMIDE/ [Suspect]
     Dosage: 20/50 MG, QOD
     Dates: start: 20040418, end: 20050514
  3. AMIODARONE [Suspect]
     Dosage: 200 MG, QD
     Route: 048
     Dates: start: 20041030, end: 20050524
  4. AMLODIPINE [Suspect]
     Dosage: 2.5 MG, QD
     Route: 048
     Dates: start: 20020618, end: 20041030

REACTIONS (4)
  - ASTHENIA [None]
  - BALANCE DISORDER [None]
  - HYPOTHYROIDISM [None]
  - TREMOR [None]
